FAERS Safety Report 21642689 (Version 1)
Quarter: 2022Q4

REPORT INFORMATION
  Report Type: Spontaneous
  Country: US (occurrence: US)
  Receive Date: 20221125
  Receipt Date: 20221125
  Transmission Date: 20230113
  Serious: No
  Sender: FDA-Public Use
  Company Number: US-GSK-US2022AMR172070

PATIENT
  Sex: Female

DRUGS (1)
  1. ALBUTEROL SULFATE [Suspect]
     Active Substance: ALBUTEROL SULFATE
     Indication: Product used for unknown indication
     Dosage: 18G/200 METERED
     Route: 055

REACTIONS (6)
  - Cough [Unknown]
  - Sinusitis [Unknown]
  - Device use error [Unknown]
  - Product storage error [Unknown]
  - Wrong technique in product usage process [Unknown]
  - Product dose omission issue [Unknown]
